FAERS Safety Report 4866720-X (Version None)
Quarter: 2005Q4

REPORT INFORMATION
  Report Type: 
  Country: None (occurrence: None)
  Receive Date: 20051221
  Receipt Date: 20051213
  Transmission Date: 20060501
  Serious: Yes (Life-Threatening)
  Sender: FDA-Public Use
  Company Number: ST-2005-008722

PATIENT
  Age: 88 Year
  Sex: Male
  Weight: 49 kg

DRUGS (8)
  1. OLMETEC [Suspect]
     Indication: HYPERTENSION
     Dosage: 20 MG QD PO
     Route: 048
     Dates: start: 20051021, end: 20051027
  2. CALBLOCK [Suspect]
  3. LOPRESSOR [Suspect]
     Indication: ANGINA UNSTABLE
     Dosage: 60 MG TID PO
     Route: 048
     Dates: end: 20051027
  4. ASPIRIN [Concomitant]
  5. MEDICON [Concomitant]
  6. MAGNESIUM OXIDE [Concomitant]
  7. LIVALO [Concomitant]
  8. PURSENNID [Concomitant]

REACTIONS (6)
  - BLOOD POTASSIUM INCREASED [None]
  - CARDIAC ARREST [None]
  - MYOCARDIAL ISCHAEMIA [None]
  - NODAL RHYTHM [None]
  - SICK SINUS SYNDROME [None]
  - SINUS ARREST [None]
